FAERS Safety Report 9352221 (Version 1)
Quarter: 2013Q2

REPORT INFORMATION
  Report Type: Spontaneous
  Country: US (occurrence: US)
  Receive Date: 20130617
  Receipt Date: 20130617
  Transmission Date: 20140414
  Serious: Yes (Other)
  Sender: FDA-Public Use
  Company Number: US-TEVA-411589USA

PATIENT
  Age: 41 Year
  Sex: Female
  Weight: 88.08 kg

DRUGS (1)
  1. PARAGARD 380A [Suspect]
     Indication: CONTRACEPTION
     Route: 015
     Dates: start: 20130607, end: 20130607

REACTIONS (1)
  - Haemorrhage [Recovered/Resolved]
